FAERS Safety Report 22989723 (Version 2)
Quarter: 2024Q2

REPORT INFORMATION
  Report Type: Spontaneous
  Country: US (occurrence: US)
  Receive Date: 20230927
  Receipt Date: 20240417
  Transmission Date: 20240716
  Serious: Yes (Hospitalization, Other)
  Sender: FDA-Public Use
  Company Number: US-HIKMA PHARMACEUTICALS USA INC.-US-H14001-23-65397

PATIENT
  Age: 16 Year
  Sex: Male
  Weight: 63.6 kg

DRUGS (7)
  1. MERCAPTOPURINE [Suspect]
     Active Substance: MERCAPTOPURINE
     Indication: Leukaemia
     Dosage: 125 MILLIGRAM, QD
     Route: 048
     Dates: start: 20220616
  2. MERCAPTOPURINE [Suspect]
     Active Substance: MERCAPTOPURINE
     Dosage: 125 UNK, QD
     Route: 048
     Dates: start: 20230803
  3. METHOTREXATE [Suspect]
     Active Substance: METHOTREXATE
     Indication: Leukaemia
     Dosage: 32.5 MILLIGRAM, SINGLE
     Route: 048
     Dates: start: 20220606
  4. PREDNISONE [Suspect]
     Active Substance: PREDNISONE
     Indication: Leukaemia
     Dosage: 35 MILLIGRAM, SINGLE
     Route: 048
     Dates: start: 20220616
  5. RUXOLITINIB [Suspect]
     Active Substance: RUXOLITINIB
     Indication: Leukaemia
     Dosage: 85 MILLIGRAM, QD
     Route: 048
     Dates: start: 20220616, end: 20230715
  6. RUXOLITINIB [Suspect]
     Active Substance: RUXOLITINIB
     Dosage: 85 MILLIGRAM, QD
     Route: 048
     Dates: start: 20230803
  7. VINCRISTINE [Suspect]
     Active Substance: VINCRISTINE
     Indication: Leukaemia
     Dosage: 2 MILLIGRAM, SINGLE
     Route: 042
     Dates: start: 20220504

REACTIONS (13)
  - Perineal pain [Recovered/Resolved]
  - Disturbance in attention [Unknown]
  - Muscle spasms [Unknown]
  - Febrile neutropenia [Recovered/Resolved]
  - Neutropenia [Recovered/Resolved]
  - Thrombocytopenia [Recovered/Resolved]
  - Anaemia [Recovered/Resolved]
  - Nausea [Not Recovered/Not Resolved]
  - Vomiting [Unknown]
  - Decreased appetite [Unknown]
  - Fatigue [Not Recovered/Not Resolved]
  - Headache [Not Recovered/Not Resolved]
  - Anorectal infection [Recovered/Resolved]

NARRATIVE: CASE EVENT DATE: 20230714
